FAERS Safety Report 11804020 (Version 1)
Quarter: 2015Q4

REPORT INFORMATION
  Report Type: Spontaneous
  Country: US (occurrence: US)
  Receive Date: 20151204
  Receipt Date: 20151204
  Transmission Date: 20160305
  Serious: Yes (Death)
  Sender: FDA-Public Use
  Company Number: US-BAYER-2015-475497

PATIENT
  Age: 93 Year
  Sex: Male

DRUGS (1)
  1. MILK OF MAGNESIA ORIGINAL [Suspect]
     Active Substance: MAGNESIUM HYDROXIDE
     Indication: CONSTIPATION
     Dosage: UNK UNK, QD
     Route: 048

REACTIONS (2)
  - Death [Fatal]
  - Product use issue [None]

NARRATIVE: CASE EVENT DATE: 200903
